FAERS Safety Report 15955364 (Version 1)
Quarter: 2019Q1

REPORT INFORMATION
  Report Type: Report from Study
  Country: US (occurrence: US)
  Receive Date: 20190213
  Receipt Date: 20190213
  Transmission Date: 20190417
  Serious: Yes (Other)
  Sender: FDA-Public Use
  Company Number: US-ACCORD-105921

PATIENT
  Age: 6 Year
  Sex: Male

DRUGS (2)
  1. DASATINIB. [Interacting]
     Active Substance: DASATINIB
     Indication: ACUTE LYMPHOCYTIC LEUKAEMIA
     Dosage: (MAX 100 MG)QD, 1.5 H AFTER START OF MTX INFUSION
  2. METHOTREXATE. [Suspect]
     Active Substance: METHOTREXATE
     Indication: ACUTE LYMPHOCYTIC LEUKAEMIA
     Dosage: RECEIVED 5 G/SQ.M

REACTIONS (5)
  - Drug clearance decreased [Unknown]
  - Drug interaction [Unknown]
  - Acute kidney injury [Unknown]
  - Pleural effusion [Unknown]
  - Mucosal inflammation [Unknown]
